FAERS Safety Report 9760289 (Version 2)
Quarter: 2015Q3

REPORT INFORMATION
  Report Type: Spontaneous
  Country: US (occurrence: US)
  Receive Date: 20131216
  Receipt Date: 20150806
  Transmission Date: 20151125
  Serious: No
  Sender: FDA-Public Use
  Company Number: US-GILEAD-2010-0028954

PATIENT
  Age: 62 Year
  Sex: Female
  Weight: 113.4 kg

DRUGS (23)
  1. CARDIZEM CD [Concomitant]
     Active Substance: DILTIAZEM HYDROCHLORIDE
  2. CALCIUM MAGNESIUM [Concomitant]
     Active Substance: CALCIUM\MAGNESIUM
  3. VITAMIN D [Concomitant]
     Active Substance: CHOLECALCIFEROL
  4. GLUCOPHAGE [Concomitant]
     Active Substance: METFORMIN HYDROCHLORIDE
  5. ALLEGRA [Concomitant]
     Active Substance: FEXOFENADINE HYDROCHLORIDE
  6. POTASSIUM CHLORIDE. [Concomitant]
     Active Substance: POTASSIUM CHLORIDE
  7. ACAI BERRY SOFTGEL [Concomitant]
  8. ZOLPIDEM TARTRATE. [Concomitant]
     Active Substance: ZOLPIDEM TARTRATE
  9. HYDROCODONE-APAP [Concomitant]
     Active Substance: ACETAMINOPHEN\HYDROCODONE
  10. PRAVACHOL [Concomitant]
     Active Substance: PRAVASTATIN SODIUM
  11. VITAMIN C [Concomitant]
     Active Substance: ASCORBIC ACID
  12. PLAVIX [Concomitant]
     Active Substance: CLOPIDOGREL BISULFATE
  13. LETAIRIS [Suspect]
     Active Substance: AMBRISENTAN
     Indication: PULMONARY ARTERIAL HYPERTENSION
     Route: 048
     Dates: start: 20100115
  14. LASIX [Concomitant]
     Active Substance: FUROSEMIDE
  15. LEVOTHYROXINE. [Concomitant]
     Active Substance: LEVOTHYROXINE
  16. NEURONTIN [Concomitant]
     Active Substance: GABAPENTIN
  17. DIOVAN HCT [Concomitant]
     Active Substance: HYDROCHLOROTHIAZIDE\VALSARTAN
  18. DAILY MULTIVITAMIN [Concomitant]
     Active Substance: VITAMINS
  19. L-GLUTATHIONE [Concomitant]
     Active Substance: GLUTATHIONE
  20. XANAX [Concomitant]
     Active Substance: ALPRAZOLAM
  21. PREVACID [Concomitant]
     Active Substance: LANSOPRAZOLE
  22. PROBIOTIC FORMULA [Concomitant]
  23. FISH OIL [Concomitant]
     Active Substance: FISH OIL

REACTIONS (2)
  - Pruritus [Unknown]
  - Chromaturia [Unknown]
